FAERS Safety Report 18907860 (Version 2)
Quarter: 2021Q2

REPORT INFORMATION
  Report Type: Spontaneous
  Country: US (occurrence: US)
  Receive Date: 20210218
  Receipt Date: 20210409
  Transmission Date: 20210717
  Serious: No
  Sender: FDA-Public Use
  Company Number: US-ALEOR DERMACEUTICALS LTD-2021SCAL000047

PATIENT

DRUGS (1)
  1. DESONIDE. [Suspect]
     Active Substance: DESONIDE
     Indication: ROSACEA
     Dosage: 2 TO 3 TIMES DAILY
     Route: 061
     Dates: start: 20210127, end: 20210203

REACTIONS (3)
  - Product physical issue [Unknown]
  - Rash [Recovered/Resolved]
  - Drug ineffective [Recovered/Resolved]

NARRATIVE: CASE EVENT DATE: 20210130
